FAERS Safety Report 19665139 (Version 1)
Quarter: 2021Q3

REPORT INFORMATION
  Report Type: Other
  Country: US (occurrence: US)
  Receive Date: 20210806
  Receipt Date: 20210806
  Transmission Date: 20211014
  Serious: Yes (Life-Threatening)
  Sender: FDA-Public Use
  Company Number: US-ROCHE-2663806

PATIENT
  Age: 54 Year
  Sex: Female
  Weight: 77.18 kg

DRUGS (6)
  1. BENADRYL [Concomitant]
     Active Substance: DIPHENHYDRAMINE HYDROCHLORIDE
     Route: 042
  2. OCREVUS [Suspect]
     Active Substance: OCRELIZUMAB
     Route: 042
     Dates: end: 20210118
  3. TYLENOL [Concomitant]
     Active Substance: ACETAMINOPHEN
     Dosage: 2 PILLS
     Route: 048
     Dates: start: 20200720, end: 20200720
  4. BENADRYL [Concomitant]
     Active Substance: DIPHENHYDRAMINE HYDROCHLORIDE
     Dosage: 2 PILLS
     Route: 048
     Dates: start: 20200720, end: 20200720
  5. OCREVUS [Suspect]
     Active Substance: OCRELIZUMAB
     Indication: MULTIPLE SCLEROSIS
     Route: 042
  6. TYLENOL [Concomitant]
     Active Substance: ACETAMINOPHEN
     Dosage: 2 PILLS
     Route: 048

REACTIONS (2)
  - Pruritus [Unknown]
  - Throat tightness [Recovered/Resolved]

NARRATIVE: CASE EVENT DATE: 20200720
